FAERS Safety Report 5154802-7 (Version None)
Quarter: 2006Q4

REPORT INFORMATION
  Report Type: 
  Country: None (occurrence: None)
  Receive Date: 20061121
  Receipt Date: 20061025
  Transmission Date: 20070319
  Serious: Yes (Life-Threatening, Hospitalization)
  Sender: FDA-Public Use
  Company Number: PHBS2006JP16798

PATIENT
  Age: 71 Year
  Sex: Female
  Weight: 56 kg

DRUGS (2)
  1. ZADITEN [Suspect]
     Indication: URTICARIA
     Dosage: 2 MG/DAY
     Route: 048
     Dates: start: 20061017, end: 20061020
  2. CONIEL [Concomitant]
     Indication: HYPERTENSION
     Dosage: 4 MG, UNK
     Route: 048

REACTIONS (4)
  - GINGIVAL BLEEDING [None]
  - PLATELET COUNT DECREASED [None]
  - PURPURA [None]
  - THROMBOCYTOPENIA [None]
